FAERS Safety Report 20579421 (Version 3)
Quarter: 2022Q2

REPORT INFORMATION
  Report Type: Spontaneous
  Country: US (occurrence: US)
  Receive Date: 20220310
  Receipt Date: 20220614
  Transmission Date: 20220720
  Serious: No
  Sender: FDA-Public Use
  Company Number: US-PFIZER INC-202200377690

PATIENT
  Age: 67 Year
  Sex: Female

DRUGS (2)
  1. IBRANCE [Suspect]
     Active Substance: PALBOCICLIB
     Dosage: 125 MG
     Dates: start: 20220223
  2. IBRANCE [Suspect]
     Active Substance: PALBOCICLIB
     Dosage: 75 MG

REACTIONS (8)
  - Rash [Unknown]
  - Urticaria [Recovered/Resolved]
  - White blood cell count decreased [Unknown]
  - Dry mouth [Unknown]
  - Dry eye [Unknown]
  - Fatigue [Unknown]
  - Laboratory test abnormal [Unknown]
  - Full blood count abnormal [Unknown]
